FAERS Safety Report 10235462 (Version 1)
Quarter: 2014Q2

REPORT INFORMATION
  Report Type: Spontaneous
  Country: US (occurrence: US)
  Receive Date: 20140613
  Receipt Date: 20140613
  Transmission Date: 20141212
  Serious: Yes (Hospitalization)
  Sender: FDA-Public Use
  Company Number: US-PERRIGO-14US005586

PATIENT
  Age: 56 Year
  Sex: Male

DRUGS (6)
  1. IBUPROFEN 200 MG 604 [Suspect]
     Indication: ARTHRALGIA
     Dosage: UNK, UNK
     Route: 048
  2. LITHIUM CARBONATE [Suspect]
     Indication: BIPOLAR DISORDER
     Dosage: 1200 MG/D IN DIVIDED DOSE
     Route: 048
  3. LITHIUM CARBONATE [Suspect]
     Dosage: UNKNOWN, UNKNOWN
     Route: 048
  4. LISINOPRIL [Concomitant]
     Indication: PRODUCT USED FOR UNKNOWN INDICATION
     Dosage: 20 MG, QD
     Route: 048
  5. QUETIAPINE [Concomitant]
     Indication: PRODUCT USED FOR UNKNOWN INDICATION
     Dosage: 300 MG, AT BEDTIME
     Route: 048
  6. RISPERIDONE [Concomitant]
     Indication: PRODUCT USED FOR UNKNOWN INDICATION
     Dosage: 1 MG, BID
     Route: 048

REACTIONS (15)
  - Toxicity to various agents [Recovered/Resolved]
  - Drug interaction [Recovered/Resolved]
  - Confusional state [Recovered/Resolved]
  - Tremor [Recovered/Resolved]
  - Diarrhoea [Recovered/Resolved]
  - Heart rate increased [Recovered/Resolved]
  - Disorientation [Recovered/Resolved]
  - Distractibility [Recovered/Resolved]
  - Dysarthria [Recovered/Resolved]
  - Ataxia [Recovered/Resolved]
  - Leukocytosis [Recovered/Resolved]
  - Blood urea increased [Recovered/Resolved]
  - Blood creatine increased [Recovered/Resolved]
  - Amnesia [Recovered/Resolved]
  - Coordination abnormal [Recovered/Resolved]
